FAERS Safety Report 13850822 (Version 3)
Quarter: 2017Q3

REPORT INFORMATION
  Report Type: Report from Study
  Country: BR (occurrence: BR)
  Receive Date: 20170809
  Receipt Date: 20170918
  Transmission Date: 20171127
  Serious: Yes (Hospitalization, Other)
  Sender: FDA-Public Use
  Company Number: BR-GLAXOSMITHKLINE-BR2016GSK044952

PATIENT
  Age: 35 Year
  Sex: Female
  Weight: 56 kg

DRUGS (3)
  1. BELIMUMAB [Suspect]
     Active Substance: BELIMUMAB
     Indication: SYSTEMIC LUPUS ERYTHEMATOSUS
     Dosage: 560 MG, UNK
     Dates: start: 20160316
  2. MAREVAN [Suspect]
     Active Substance: WARFARIN SODIUM
     Indication: CEREBROVASCULAR ACCIDENT
     Dosage: 2.5 MG, QD
  3. FLUCONAZOLE. [Suspect]
     Active Substance: FLUCONAZOLE
     Indication: ONYCHOMYCOSIS
     Dosage: UNK

REACTIONS (18)
  - Drug dose omission [Not Recovered/Not Resolved]
  - Inappropriate schedule of drug administration [Recovered/Resolved]
  - Drug prescribing error [Not Recovered/Not Resolved]
  - Onychomycosis [Unknown]
  - Cerebrovascular accident [Unknown]
  - Somnolence [Unknown]
  - Underdose [Not Recovered/Not Resolved]
  - Hypersensitivity [Recovered/Resolved]
  - Vaginal haemorrhage [Recovered/Resolved]
  - Product availability issue [Unknown]
  - Dyspnoea [Unknown]
  - Pruritus generalised [Recovered/Resolved]
  - Menorrhagia [Recovered/Resolved]
  - Weight increased [Unknown]
  - Circumstance or information capable of leading to medication error [Unknown]
  - Foot operation [Recovered/Resolved]
  - Speech disorder [Unknown]
  - Gait disturbance [Unknown]

NARRATIVE: CASE EVENT DATE: 20170512
